FAERS Safety Report 7114335-5 (Version None)
Quarter: 2010Q4

REPORT INFORMATION
  Report Type: 
  Country: None (occurrence: None)
  Receive Date: 20101119
  Receipt Date: 20101116
  Transmission Date: 20110411
  Serious: Yes (Other)
  Sender: FDA-Public Use
  Company Number: FR-PFIZER INC-2010035537

PATIENT
  Age: 58 Year
  Sex: Male

DRUGS (2)
  1. SUTENT [Suspect]
     Indication: RENAL CANCER METASTATIC
     Dosage: 50 MG/DAY, CYCLIC
     Dates: start: 20091001, end: 20100401
  2. SUTENT [Suspect]
     Dosage: 25 MG/DAY, CYCLIC
     Dates: start: 20100809

REACTIONS (1)
  - HYPERKERATOSIS [None]
